FAERS Safety Report 4881164-2 (Version None)
Quarter: 2006Q1

REPORT INFORMATION
  Report Type: 
  Country: None (occurrence: None)
  Receive Date: 20060116
  Receipt Date: 20060109
  Transmission Date: 20060701
  Serious: Yes (Death, Other)
  Sender: FDA-Public Use
  Company Number: GB-JNJFOC-20050801411

PATIENT
  Sex: Female

DRUGS (4)
  1. REMICADE [Suspect]
     Indication: RHEUMATOID ARTHRITIS
     Route: 042
  2. METHOTREXATE [Concomitant]
     Route: 065
  3. CELEBREX [Concomitant]
     Route: 065
  4. FOLIC ACID [Concomitant]
     Route: 065

REACTIONS (6)
  - CHRONIC LYMPHOCYTIC LEUKAEMIA [None]
  - HYPERTENSION [None]
  - METASTASES TO LIVER [None]
  - RHEUMATOID ARTHRITIS [None]
  - SMALL CELL LUNG CANCER METASTATIC [None]
  - VULVAL CANCER STAGE 0 [None]
